FAERS Safety Report 5002102-8 (Version None)
Quarter: 2006Q2

REPORT INFORMATION
  Report Type: 
  Country: None (occurrence: None)
  Receive Date: 20060515
  Receipt Date: 20060117
  Transmission Date: 20061013
  Serious: Yes (Hospitalization)
  Sender: FDA-Public Use
  Company Number: US-MERCK-0601USA01963

PATIENT
  Age: 81 Year
  Sex: Male
  Weight: 85 kg

DRUGS (9)
  1. VIOXX [Suspect]
     Indication: OSTEOARTHRITIS
     Route: 048
     Dates: start: 20031101, end: 20040604
  2. LISINOPRIL [Concomitant]
     Route: 065
     Dates: start: 19940101, end: 20040601
  3. TERAZOSIN HYDROCHLORIDE [Concomitant]
     Route: 065
  4. TYLENOL (CAPLET) [Concomitant]
     Route: 065
  5. ZOCOR [Concomitant]
     Route: 065
     Dates: end: 20040601
  6. FELODIPINE [Concomitant]
     Route: 065
  7. ALTACE [Concomitant]
     Route: 065
     Dates: start: 20020101, end: 20040601
  8. HYDROCHLOROTHIAZIDE [Concomitant]
     Route: 065
     Dates: end: 20040601
  9. ASPIRIN [Concomitant]
     Route: 065

REACTIONS (6)
  - CARDIAC DISORDER [None]
  - COLON CANCER [None]
  - EMOTIONAL DISTRESS [None]
  - MYOCARDIAL INFARCTION [None]
  - NAUSEA [None]
  - VOMITING [None]
